FAERS Safety Report 5413382-9 (Version None)
Quarter: 2007Q3

REPORT INFORMATION
  Report Type: 
  Country: None (occurrence: None)
  Receive Date: 20070810
  Receipt Date: 20070731
  Transmission Date: 20080115
  Serious: Yes (Hospitalization)
  Sender: FDA-Public Use
  Company Number: 2006BI013183

PATIENT
  Age: 38 Year
  Sex: Female

DRUGS (10)
  1. AVONEX [Suspect]
     Indication: MULTIPLE SCLEROSIS
     Dosage: 30 UG QW IM
     Route: 030
     Dates: start: 20050617
  2. CALCIUM CHLORIDE [Concomitant]
  3. SYNTHROID [Concomitant]
  4. LEVOXYL [Concomitant]
  5. RELPAX [Concomitant]
  6. MOTRIN [Concomitant]
  7. CYMBALTA [Concomitant]
  8. TRILEPTAL [Concomitant]
  9. ARICEPT [Concomitant]
  10. BACLOFEN [Concomitant]

REACTIONS (4)
  - HEADACHE [None]
  - INFECTION [None]
  - INTRACRANIAL HYPOTENSION [None]
  - PYREXIA [None]
